FAERS Safety Report 25260489 (Version 2)
Quarter: 2025Q3

REPORT INFORMATION
  Report Type: Report from Study
  Country: US (occurrence: US)
  Receive Date: 20250501
  Receipt Date: 20250821
  Transmission Date: 20251020
  Serious: Yes (Death, Hospitalization, Other)
  Sender: REGENERON
  Company Number: US-REGENERON PHARMACEUTICALS, INC.-2025-072402

PATIENT
  Sex: Female

DRUGS (2)
  1. EYLEA [Suspect]
     Active Substance: AFLIBERCEPT
     Indication: Diabetic retinopathy
     Dosage: 2 MG (1 SYRINGE), EVERY FOUR WEEKS INTO EACH EYE (STRENGTH: 2MG/0.05ML, FORMULATION: PFS GERRESHEIME
     Dates: start: 202410
  2. EYLEA [Suspect]
     Active Substance: AFLIBERCEPT
     Dosage: 2 MG (1 SYRINGE), EVERY FOUR WEEKS INTO EACH EYE (STRENGTH: 2MG/0.05ML, FORMULATION: PFS GERRESHEIME

REACTIONS (2)
  - Death [Fatal]
  - Hospitalisation [Not Recovered/Not Resolved]

NARRATIVE: CASE EVENT DATE: 20250707
